FAERS Safety Report 18544293 (Version 1)
Quarter: 2020Q4

REPORT INFORMATION
  Report Type: Spontaneous
  Country: US (occurrence: US)
  Receive Date: 20201125
  Receipt Date: 20201125
  Transmission Date: 20210114
  Serious: Yes (Hospitalization, Other)
  Sender: FDA-Public Use
  Company Number: US-AUROBINDO-AUR-APL-2020-057902

PATIENT
  Age: 12 Month
  Sex: Female

DRUGS (1)
  1. AMOXICILLIN. [Suspect]
     Active Substance: AMOXICILLIN
     Indication: PRODUCT USED FOR UNKNOWN INDICATION
     Dosage: 160 MILLIGRAM, TWO TIMES A DAY
     Route: 065

REACTIONS (4)
  - Hepatitis acute [Unknown]
  - Drug-induced liver injury [Unknown]
  - Ocular icterus [Unknown]
  - Lethargy [Unknown]
